FAERS Safety Report 8183234-2 (Version None)
Quarter: 2012Q1

REPORT INFORMATION
  Report Type: 
  Country: None (occurrence: None)
  Receive Date: 20120305
  Receipt Date: 20120227
  Transmission Date: 20120608
  Serious: Yes (Death)
  Sender: FDA-Public Use
  Company Number: JP-ASTELLAS-2012JP001575

PATIENT
  Age: 62 Year
  Sex: Male

DRUGS (5)
  1. PREDNISOLONE [Concomitant]
     Indication: RHEUMATOID ARTHRITIS
     Route: 065
  2. METHOTREXATE [Concomitant]
     Indication: RHEUMATOID ARTHRITIS
     Route: 065
  3. ETANERCEPT [Concomitant]
     Route: 065
  4. PROGRAF [Suspect]
     Route: 065
  5. PROGRAF [Suspect]
     Indication: RHEUMATOID ARTHRITIS
     Route: 065

REACTIONS (2)
  - INTERSTITIAL LUNG DISEASE [None]
  - RENAL IMPAIRMENT [None]
